FAERS Safety Report 7755255-2 (Version None)
Quarter: 2011Q3

REPORT INFORMATION
  Report Type: 
  Country: None (occurrence: None)
  Receive Date: 20110913
  Receipt Date: 20110908
  Transmission Date: 20111222
  Serious: Yes (Hospitalization, Other)
  Sender: FDA-Public Use
  Company Number: 2009SP016958

PATIENT
  Age: 39 Year
  Sex: Female
  Weight: 113.3993 kg

DRUGS (9)
  1. NUVARING [Suspect]
     Indication: CONTRACEPTION
     Dosage: QM;VAG
     Route: 067
     Dates: start: 20060801, end: 20061113
  2. FOLIC ACID [Concomitant]
  3. METHOTREXATE [Concomitant]
  4. CEFADROXIL [Concomitant]
  5. CLOTRIMAZOLE [Concomitant]
  6. ATACAND HCT [Concomitant]
  7. DYAZIDE [Concomitant]
  8. CLARINEX [Concomitant]
  9. PREDNISONE [Concomitant]

REACTIONS (16)
  - SALPINGITIS [None]
  - ENDOMETRIAL HYPERPLASIA [None]
  - DYSPNOEA [None]
  - DEEP VEIN THROMBOSIS [None]
  - LEFT VENTRICULAR HYPERTROPHY [None]
  - CHOLELITHIASIS [None]
  - PRESYNCOPE [None]
  - MITRAL VALVE INCOMPETENCE [None]
  - MENSTRUATION IRREGULAR [None]
  - TRICUSPID VALVE INCOMPETENCE [None]
  - PULMONARY VALVE INCOMPETENCE [None]
  - PELVIC MASS [None]
  - RENAL MASS [None]
  - CHEST DISCOMFORT [None]
  - PULMONARY HYPERTENSION [None]
  - HEPATIC STEATOSIS [None]
